FAERS Safety Report 8470626-7 (Version None)
Quarter: 2012Q2

REPORT INFORMATION
  Report Type: 
  Country: None (occurrence: None)
  Receive Date: 20120627
  Receipt Date: 20120622
  Transmission Date: 20120825
  Serious: Yes (Other)
  Sender: FDA-Public Use
  Company Number: PHHY2012FR054640

PATIENT
  Age: 48 Year
  Sex: Female

DRUGS (3)
  1. GILENYA [Suspect]
     Dosage: UNK UKN, UNK
     Route: 048
  2. GILENYA [Suspect]
     Dosage: 13 MG, UNK
     Route: 048
     Dates: start: 20120622
  3. ANAFRANIL [Concomitant]
     Dosage: UNK UKN, UNK

REACTIONS (2)
  - INTENTIONAL OVERDOSE [None]
  - SUICIDE ATTEMPT [None]
